FAERS Safety Report 10039141 (Version 1)
Quarter: 2014Q1

REPORT INFORMATION
  Report Type: Spontaneous
  Country: US (occurrence: None)
  Receive Date: 20140306
  Receipt Date: 20140306
  Transmission Date: 20141002
  Serious: Yes (Hospitalization)
  Sender: FDA-Public Use
  Company Number: 163-21880-13073190

PATIENT
  Age: 81 Year
  Sex: Male

DRUGS (4)
  1. REVLIMID [Suspect]
     Indication: PLASMA CELL MYELOMA
     Dosage: EVERY THIRD DAY, PO
     Route: 048
     Dates: start: 20130317
  2. MELPHALAN (MELPHALAN) [Concomitant]
  3. VELCADE (BORTEZOMIB) [Concomitant]
  4. DEXAMETHASONE (DEXAMETHASONE) [Concomitant]

REACTIONS (3)
  - Renal failure [None]
  - Pyrexia [None]
  - Pulmonary embolism [None]
